FAERS Safety Report 6690030-1 (Version None)
Quarter: 2010Q2

REPORT INFORMATION
  Report Type: 
  Country: None (occurrence: None)
  Receive Date: 20100421
  Receipt Date: 20100412
  Transmission Date: 20101027
  Serious: Yes (Hospitalization)
  Sender: FDA-Public Use
  Company Number: PHEH2009US06596

PATIENT
  Sex: Female

DRUGS (2)
  1. RECLAST [Suspect]
     Indication: OSTEOPOROSIS
     Dosage: 5 MG
     Dates: start: 20090216
  2. VITAMIN D SUPPLEMENT [Concomitant]
     Indication: VITAMIN D DEFICIENCY

REACTIONS (4)
  - INFECTION [None]
  - INFLUENZA [None]
  - MALAISE [None]
  - PAIN [None]
